FAERS Safety Report 9374496 (Version 2)
Quarter: 2013Q3

REPORT INFORMATION
  Report Type: Spontaneous
  Country: CH (occurrence: CH)
  Receive Date: 20130628
  Receipt Date: 20130821
  Transmission Date: 20140515
  Serious: Yes (Other)
  Sender: FDA-Public Use
  Company Number: PHHY2013CH066151

PATIENT
  Age: 90 Year
  Sex: Female

DRUGS (5)
  1. RASILEZ HCT [Suspect]
     Indication: HYPERTONIA
     Dosage: UNK UKN, UNK
     Dates: start: 20090207, end: 20130515
  2. RASILEZ HCT [Suspect]
     Indication: OFF LABEL USE
  3. COVERSUM [Concomitant]
  4. ATORVASTATIN [Concomitant]
  5. ALDACTONE [Concomitant]

REACTIONS (2)
  - Atrioventricular block [Unknown]
  - Hypertonia [Unknown]
